FAERS Safety Report 6639173-9 (Version None)
Quarter: 2010Q1

REPORT INFORMATION
  Report Type: 
  Country: None (occurrence: None)
  Receive Date: 20100317
  Receipt Date: 20100315
  Transmission Date: 20100710
  Serious: Yes (Other)
  Sender: FDA-Public Use
  Company Number: CH-ABBOTT-10P-151-0631164-00

PATIENT
  Age: 36 Year
  Sex: Female

DRUGS (4)
  1. REDUCTIL [Suspect]
     Indication: DRUG USE FOR UNKNOWN INDICATION
     Dates: start: 20091101
  2. MEFENAMIC ACID [Suspect]
     Indication: ABDOMINAL PAIN
  3. GINGKO BILOBA [Suspect]
     Indication: DRUG USE FOR UNKNOWN INDICATION
  4. SPIRULINA SPP. [Concomitant]
     Indication: DRUG USE FOR UNKNOWN INDICATION

REACTIONS (1)
  - ABORTION INDUCED [None]
